FAERS Safety Report 10981970 (Version 3)
Quarter: 2015Q2

REPORT INFORMATION
  Report Type: Spontaneous
  Country: GR (occurrence: GR)
  Receive Date: 20150403
  Receipt Date: 20150430
  Transmission Date: 20150821
  Serious: Yes (Death)
  Sender: FDA-Public Use
  Company Number: GR-ROCHE-1559772

PATIENT
  Sex: Male

DRUGS (3)
  1. CARVEPEN [Concomitant]
     Active Substance: CARVEDILOL
     Dosage: 6.25 1/4 X 2
     Route: 065
     Dates: start: 2011
  2. ERIVEDGE [Suspect]
     Active Substance: VISMODEGIB
     Indication: BASAL CELL CARCINOMA
     Route: 048
     Dates: start: 20150214
  3. NEXIUM [Concomitant]
     Active Substance: ESOMEPRAZOLE MAGNESIUM
     Indication: PROPHYLAXIS
     Dosage: 20 1 X 1
     Route: 065
     Dates: start: 2011

REACTIONS (3)
  - Cardiopulmonary failure [Fatal]
  - Asthenia [Fatal]
  - Decreased appetite [Fatal]
